FAERS Safety Report 8008878-X (Version None)
Quarter: 2011Q4

REPORT INFORMATION
  Report Type: 
  Country: None (occurrence: None)
  Receive Date: 20111227
  Receipt Date: 20111108
  Transmission Date: 20120403
  Serious: No
  Sender: FDA-Public Use
  Company Number: US-BAYER-2011-109875

PATIENT
  Sex: Female

DRUGS (1)
  1. CIPRO [Suspect]
     Indication: URINARY TRACT INFECTION
     Dosage: UNK
     Route: 033

REACTIONS (1)
  - DEVICE OCCLUSION [None]
